FAERS Safety Report 20917624 (Version 1)
Quarter: 2022Q2

REPORT INFORMATION
  Report Type: Spontaneous
  Country: FR (occurrence: FR)
  Receive Date: 20220606
  Receipt Date: 20220606
  Transmission Date: 20220721
  Serious: Yes (Death, Hospitalization, Other)
  Sender: FDA-Public Use
  Company Number: FR-GLAXOSMITHKLINE-FR2022EME080215

PATIENT
  Age: 39 Year
  Sex: Male

DRUGS (1)
  1. AMOXICILLIN\CLAVULANIC ACID [Suspect]
     Active Substance: AMOXICILLIN\CLAVULANIC ACID
     Indication: Colitis ulcerative
     Dosage: UNK
     Route: 065

REACTIONS (13)
  - Multiple organ dysfunction syndrome [Fatal]
  - Septic shock [Fatal]
  - Coma [Unknown]
  - Capnocytophaga sepsis [Unknown]
  - Shock [Unknown]
  - Chills [Unknown]
  - Cyanosis [Unknown]
  - Dizziness [Unknown]
  - Hypotension [Unknown]
  - Livedo reticularis [Unknown]
  - Pyrexia [Unknown]
  - Stupor [Unknown]
  - Cardiac arrest [Recovered/Resolved]
